FAERS Safety Report 8534125-6 (Version None)
Quarter: 2012Q3

REPORT INFORMATION
  Report Type: 
  Country: None (occurrence: None)
  Receive Date: 20120724
  Receipt Date: 20120718
  Transmission Date: 20120928
  Serious: Yes (Other)
  Sender: FDA-Public Use
  Company Number: SI-ABBOTT-12P-261-0943455-00

PATIENT
  Sex: Male
  Weight: 74 kg

DRUGS (5)
  1. LAMICTAL [Concomitant]
     Indication: EPILEPSY
  2. HUMIRA [Suspect]
     Indication: CROHN'S DISEASE
     Route: 058
     Dates: start: 20100101, end: 20110301
  3. HUMIRA [Suspect]
     Route: 058
     Dates: start: 20120529
  4. TRAMADOL HYDROCHLORIDE [Concomitant]
     Indication: PAIN
     Dosage: 36 GGTS IF PAIN APPEARS
     Route: 048
  5. HUMIRA [Suspect]
     Route: 058
     Dates: start: 20111231

REACTIONS (2)
  - ILEECTOMY [None]
  - EPILEPSY [None]
